FAERS Safety Report 10135865 (Version 2)
Quarter: 2015Q1

REPORT INFORMATION
  Report Type: Report from Study
  Country: US (occurrence: US)
  Receive Date: 20140429
  Receipt Date: 20150113
  Transmission Date: 20150720
  Serious: Yes (Hospitalization, Other)
  Sender: FDA-Public Use
  Company Number: US-ROCHE-1389310

PATIENT
  Age: 65 Year
  Sex: Female
  Weight: 83.08 kg

DRUGS (5)
  1. TAXOTERE [Concomitant]
     Active Substance: DOCETAXEL
     Indication: BREAST CANCER METASTATIC
     Route: 065
     Dates: start: 201312, end: 201403
  2. LASIX [Concomitant]
     Active Substance: FUROSEMIDE
     Indication: DYSPNOEA
     Route: 048
     Dates: start: 201403
  3. HERCEPTIN [Suspect]
     Active Substance: TRASTUZUMAB
     Indication: BREAST CANCER METASTATIC
     Route: 042
     Dates: start: 20131231, end: 20150106
  4. PERJETA [Suspect]
     Active Substance: PERTUZUMAB
     Indication: BREAST CANCER METASTATIC
     Route: 042
     Dates: start: 20131231, end: 20150106
  5. ZOMETA [Concomitant]
     Active Substance: ZOLEDRONIC ACID
     Route: 042

REACTIONS (7)
  - Dyspnoea [Recovered/Resolved]
  - Diarrhoea [Unknown]
  - Nausea [Recovering/Resolving]
  - Blood urea increased [Recovered/Resolved]
  - Ejection fraction decreased [Not Recovered/Not Resolved]
  - Blood creatinine increased [Recovered/Resolved]
  - Spinal fracture [Recovered/Resolved]

NARRATIVE: CASE EVENT DATE: 201401
